FAERS Safety Report 13101608 (Version 1)
Quarter: 2017Q1

REPORT INFORMATION
  Report Type: Report from Study
  Country: CA (occurrence: CA)
  Receive Date: 20170110
  Receipt Date: 20170110
  Transmission Date: 20170428
  Serious: Yes (Other)
  Sender: FDA-Public Use
  Company Number: CA-TAKEDA-2017TUS000246

PATIENT
  Age: 47 Year
  Sex: Male

DRUGS (3)
  1. SALOFALK                           /00000301/ [Concomitant]
     Active Substance: MESALAMINE
     Dosage: UNK
     Route: 054
     Dates: start: 20150119
  2. VEDOLIZUMAB [Suspect]
     Active Substance: VEDOLIZUMAB
     Indication: COLITIS ULCERATIVE
     Dosage: 300 MG, UNK
     Route: 042
     Dates: start: 20150710
  3. MEZAVANT [Concomitant]
     Active Substance: MESALAMINE
     Dosage: 5000 MG, QD
     Dates: start: 20100209

REACTIONS (1)
  - Hepatic pain [Unknown]

NARRATIVE: CASE EVENT DATE: 201612
